FAERS Safety Report 12741321 (Version 4)
Quarter: 2016Q4

REPORT INFORMATION
  Report Type: Report from Study
  Country: US (occurrence: US)
  Receive Date: 20160914
  Receipt Date: 20161110
  Transmission Date: 20170207
  Serious: Yes (Hospitalization, Other)
  Sender: FDA-Public Use
  Company Number: US-GILEAD-2016-0233143

PATIENT
  Age: 60 Year
  Sex: Female

DRUGS (5)
  1. AMBRISENTAN [Suspect]
     Active Substance: AMBRISENTAN
     Dosage: 5 MG, QD
     Route: 065
     Dates: start: 20160818
  2. ADEMPAS [Concomitant]
     Active Substance: RIOCIGUAT
  3. OXYGEN. [Concomitant]
     Active Substance: OXYGEN
  4. AMBRISENTAN [Suspect]
     Active Substance: AMBRISENTAN
     Indication: PRODUCT USED FOR UNKNOWN INDICATION
     Dosage: 10 MG, QD
     Route: 065
     Dates: start: 20100603
  5. XARELTO [Concomitant]
     Active Substance: RIVAROXABAN

REACTIONS (7)
  - Oxygen saturation abnormal [Unknown]
  - Chest pain [Unknown]
  - Blood calcium decreased [Unknown]
  - Pulmonary embolism [Not Recovered/Not Resolved]
  - Dizziness postural [Unknown]
  - Fatigue [Unknown]
  - Dyspnoea [Not Recovered/Not Resolved]
